FAERS Safety Report 11792784 (Version 1)
Quarter: 2015Q4

REPORT INFORMATION
  Report Type: Spontaneous
  Country: IT (occurrence: None)
  Receive Date: 20151130
  Receipt Date: 20151130
  Transmission Date: 20160305
  Serious: Yes (Hospitalization)
  Sender: FDA-Public Use
  Company Number: 2015RR-106635

PATIENT
  Age: 61 Year
  Sex: Male

DRUGS (4)
  1. LANSOPRAZOLE (LANSOPRAZOLE) UNKNOWN [Suspect]
     Active Substance: LANSOPRAZOLE
     Indication: DRUG ABUSE
     Route: 048
     Dates: start: 20150907, end: 20150907
  2. VALIUM [Suspect]
     Active Substance: DIAZEPAM
     Indication: DRUG ABUSE
     Dosage: 20 ML, SINGLE, ORAL
     Route: 048
     Dates: start: 20150907, end: 20150907
  3. BISOPROLOL (BISOPROLOL) UNKNOWN [Suspect]
     Active Substance: BISOPROLOL
     Indication: DRUG ABUSE
     Dosage: 105 MG, SINGLE, ORAL
     Route: 048
     Dates: start: 20150907, end: 20150907
  4. DELTACORTENE (PREDNISONE) TABLET, 25MG [Suspect]
     Active Substance: PREDNISONE
     Indication: DRUG ABUSE
     Dosage: 10 DF, SINGLE, ORAL
     Route: 048

REACTIONS (3)
  - Sopor [None]
  - Drug abuse [None]
  - Electrocardiogram ST segment abnormal [None]

NARRATIVE: CASE EVENT DATE: 20150907
